FAERS Safety Report 13523678 (Version 9)
Quarter: 2020Q2

REPORT INFORMATION
  Report Type: Spontaneous
  Country: US (occurrence: US)
  Receive Date: 20170508
  Receipt Date: 20200406
  Transmission Date: 20200713
  Serious: Yes (Other)
  Sender: FDA-Public Use
  Company Number: US-VIFOR (INTERNATIONAL) INC.-VIT-2017-01165

PATIENT
  Age: 79 Year
  Sex: Male
  Weight: 87.17 kg

DRUGS (26)
  1. ASPIRIN [ACETYLSALICYLIC ACID] [Concomitant]
     Active Substance: ASPIRIN
  2. GLIMEPIRIDE. [Concomitant]
     Active Substance: GLIMEPIRIDE
  3. OMEPRAZOLE. [Concomitant]
     Active Substance: OMEPRAZOLE
  4. MAGNESIUM CHLORIDE. [Concomitant]
     Active Substance: MAGNESIUM CHLORIDE
  5. MAGNESIUM GLUCONATE [Concomitant]
     Active Substance: MAGNESIUM GLUCONATE
  6. VELTASSA [Suspect]
     Active Substance: PATIROMER
     Indication: HYPERKALAEMIA
     Route: 048
     Dates: start: 20160614
  7. ACIDOPHILUS [Concomitant]
     Active Substance: LACTOBACILLUS ACIDOPHILUS
  8. AVAPRO [Concomitant]
     Active Substance: IRBESARTAN
  9. CHROMIUM PICOLINATE [Concomitant]
     Active Substance: CHROMIUM PICOLINATE
  10. TRANDOLAPRIL. [Concomitant]
     Active Substance: TRANDOLAPRIL
  11. ALFUZOSIN HYDROCHLORIDE. [Concomitant]
     Active Substance: ALFUZOSIN HYDROCHLORIDE
  12. CLONIDINE HCL [Concomitant]
     Active Substance: CLONIDINE HYDROCHLORIDE
  13. DOCUSATE SODIUM. [Concomitant]
     Active Substance: DOCUSATE SODIUM
  14. HYDRALAZINE HCL [Concomitant]
     Active Substance: HYDRALAZINE HYDROCHLORIDE
  15. VITAMIN C [Concomitant]
     Active Substance: ASCORBIC ACID
  16. BYSTOLIC [Concomitant]
     Active Substance: NEBIVOLOL HYDROCHLORIDE
  17. REMICADE [Concomitant]
     Active Substance: INFLIXIMAB
  18. BETA CAROTENE. [Concomitant]
     Active Substance: BETA CAROTENE
  19. FUROSEMIDE. [Concomitant]
     Active Substance: FUROSEMIDE
  20. LORTAB [Concomitant]
     Active Substance: ACETAMINOPHEN\HYDROCODONE BITARTRATE
  21. TEMAZEPAM. [Concomitant]
     Active Substance: TEMAZEPAM
  22. LIDOCAINE. [Suspect]
     Active Substance: LIDOCAINE
     Indication: PRODUCT USED FOR UNKNOWN INDICATION
  23. ALLOPURINOL. [Concomitant]
     Active Substance: ALLOPURINOL
  24. VITAMIN B12 [Concomitant]
     Active Substance: CYANOCOBALAMIN
  25. VITAMIN D [ERGOCALCIFEROL] [Concomitant]
     Active Substance: ERGOCALCIFEROL
  26. PANTOPRAZOLE SODIUM. [Concomitant]
     Active Substance: PANTOPRAZOLE SODIUM

REACTIONS (12)
  - Product dose omission [Recovered/Resolved]
  - Postoperative wound infection [Recovered/Resolved]
  - Hypersensitivity [Unknown]
  - Skin exfoliation [Recovered/Resolved]
  - Blood magnesium decreased [Recovering/Resolving]
  - Constipation [Recovering/Resolving]
  - Squamous cell carcinoma [Not Recovered/Not Resolved]
  - Rash pruritic [Unknown]
  - Swelling [Unknown]
  - Skin lesion [Unknown]
  - Rash [Not Recovered/Not Resolved]
  - Bile duct stone [Unknown]

NARRATIVE: CASE EVENT DATE: 2017
